FAERS Safety Report 6256679-5 (Version None)
Quarter: 2009Q3

REPORT INFORMATION
  Report Type: 
  Country: None (occurrence: None)
  Receive Date: 20090706
  Receipt Date: 20090626
  Transmission Date: 20100115
  Serious: Yes (Hospitalization)
  Sender: FDA-Public Use
  Company Number: US-BAYER-200824061NA

PATIENT
  Age: 33 Year
  Sex: Female
  Weight: 49 kg

DRUGS (11)
  1. BETASERON [Suspect]
     Indication: RELAPSING-REMITTING MULTIPLE SCLEROSIS
     Dosage: TOTAL DAILY DOSE: 8 MIU
     Route: 058
     Dates: start: 20050901, end: 20071214
  2. BETASERON [Suspect]
     Dosage: TOTAL DAILY DOSE: 8 MIU
     Route: 058
     Dates: start: 20080108
  3. BETASERON [Suspect]
     Dosage: TOTAL DAILY DOSE: 8 MIU
     Route: 058
     Dates: end: 20090406
  4. BETASERON [Suspect]
     Route: 058
     Dates: start: 20080628
  5. VICODIN [Suspect]
     Dates: start: 20080507
  6. PREDNISONE [Concomitant]
     Dates: start: 19951101, end: 20080701
  7. PREDNISONE [Concomitant]
     Dosage: TOTAL DAILY DOSE: 10 MG
     Dates: start: 20080701
  8. BACLOFEN [Concomitant]
     Dosage: TOTAL DAILY DOSE: 60  MG
     Dates: start: 20050801
  9. MECLIZINE [Concomitant]
     Dosage: TOTAL DAILY DOSE: 75 MG
     Dates: start: 20050801
  10. DETROL [Concomitant]
  11. TYSABRI [Concomitant]

REACTIONS (6)
  - ABDOMINAL DISCOMFORT [None]
  - ABDOMINAL TENDERNESS [None]
  - CONSTIPATION [None]
  - GAIT DISTURBANCE [None]
  - INJECTION SITE ABSCESS [None]
  - MULTIPLE SCLEROSIS [None]
